FAERS Safety Report 24816916 (Version 2)
Quarter: 2025Q1

REPORT INFORMATION
  Report Type: Spontaneous
  Country: FR (occurrence: FR)
  Receive Date: 20250108
  Receipt Date: 20250131
  Transmission Date: 20250408
  Serious: Yes (Life-Threatening, Other)
  Sender: Haleon PLC
  Company Number: FR-HALEON-FR2020249341

PATIENT
  Age: 44 Year
  Sex: Male
  Weight: 82.4 kg

DRUGS (26)
  1. DICLOFENAC [Suspect]
     Active Substance: DICLOFENAC
     Indication: Pain
     Dosage: 2 DF, QD
     Route: 003
     Dates: start: 20201118, end: 20201126
  2. ACTRAPID [Suspect]
     Active Substance: INSULIN HUMAN
     Indication: Diabetes mellitus
     Dosage: 12 IU, QD
     Route: 058
     Dates: end: 20201126
  3. MORPHINE SULFATE [Suspect]
     Active Substance: MORPHINE SULFATE
     Indication: Sciatica
     Dosage: 20 MG, QD
     Route: 048
     Dates: start: 20201108, end: 20201126
  4. MORPHINE SULFATE [Suspect]
     Active Substance: MORPHINE SULFATE
     Indication: Sciatica
     Route: 065
  5. MAGNESIUM SULFATE\SACCHAROMYCES CEREVISIAE [Suspect]
     Active Substance: MAGNESIUM SULFATE\SACCHAROMYCES CEREVISIAE
     Indication: Product used for unknown indication
     Dosage: 2 DF, QD
     Route: 048
     Dates: end: 20201126
  6. TAHOR [Suspect]
     Active Substance: ATORVASTATIN CALCIUM
     Indication: Hypercholesterolaemia
     Dosage: 10 MG, QD
     Route: 048
     Dates: end: 20201126
  7. SODIUM BICARBONATE [Suspect]
     Active Substance: SODIUM BICARBONATE
     Indication: Constipation
     Dosage: 1 DF, QD
     Route: 048
     Dates: start: 20201109, end: 20201126
  8. EBASTINE [Suspect]
     Active Substance: EBASTINE
     Indication: Product used for unknown indication
     Dosage: 5 MG, QD
     Route: 048
     Dates: end: 20201126
  9. MAGNESIUM SULFATE [Suspect]
     Active Substance: MAGNESIUM SULFATE
     Indication: Product used for unknown indication
     Dosage: 1 DF, QD
     Route: 065
     Dates: end: 20201126
  10. SKENAN [Suspect]
     Active Substance: MORPHINE SULFATE
     Indication: Sciatica
     Dosage: 20 MG, QD
     Route: 048
     Dates: start: 20201108, end: 20201126
  11. SKENAN [Suspect]
     Active Substance: MORPHINE SULFATE
     Route: 065
  12. ALPRAZOLAM [Suspect]
     Active Substance: ALPRAZOLAM
     Indication: Poisoning deliberate
     Route: 048
     Dates: start: 20201126, end: 20201126
  13. TRULICITY [Suspect]
     Active Substance: DULAGLUTIDE
     Indication: Diabetes mellitus
     Dosage: 1 DF, WE
     Route: 058
     Dates: end: 20201126
  14. METFORMIN PAMOATE [Suspect]
     Active Substance: METFORMIN PAMOATE
     Indication: Diabetes mellitus
     Dosage: 2100 MG, QD
     Route: 048
     Dates: end: 20201126
  15. NEO-MERCAZOLE [Suspect]
     Active Substance: CARBIMAZOLE
     Indication: Hyperthyroidism
     Dosage: 5 MG, QD
     Route: 048
     Dates: end: 20201126
  16. NEO-MERCAZOLE [Suspect]
     Active Substance: CARBIMAZOLE
     Dosage: 5 MG, QD
     Route: 048
     Dates: end: 20201126
  17. ACETAMINOPHEN [Suspect]
     Active Substance: ACETAMINOPHEN
     Indication: Pain
     Route: 048
     Dates: end: 20201126
  18. MOVICOL [Suspect]
     Active Substance: POLYETHYLENE GLYCOL 3350\POTASSIUM CHLORIDE\SODIUM BICARBONATE\SODIUM CHLORIDE
     Indication: Constipation
     Dosage: 1 DF, QD
     Route: 048
     Dates: start: 20201109, end: 20201126
  19. MOVICOL [Suspect]
     Active Substance: POLYETHYLENE GLYCOL 3350\POTASSIUM CHLORIDE\SODIUM BICARBONATE\SODIUM CHLORIDE
     Route: 065
  20. ATORVASTATIN CALCIUM [Suspect]
     Active Substance: ATORVASTATIN CALCIUM
     Indication: Hypercholesterolaemia
     Route: 048
     Dates: end: 20201126
  21. DESLORATADINE [Suspect]
     Active Substance: DESLORATADINE
     Indication: Product used for unknown indication
     Route: 048
     Dates: end: 20201126
  22. CARBIMAZOLE [Suspect]
     Active Substance: CARBIMAZOLE
     Indication: Hyperthyroidism
     Route: 048
     Dates: end: 20201126
  23. POLYETHYLENE GLYCOL 3350\POTASSIUM CHLORIDE\SODIUM BICARBONATE\SODIUM [Suspect]
     Active Substance: POLYETHYLENE GLYCOL 3350\POTASSIUM CHLORIDE\SODIUM BICARBONATE\SODIUM CHLORIDE
     Indication: Constipation
     Dates: start: 20201109, end: 20201126
  24. INSULIN HUMAN [Suspect]
     Active Substance: INSULIN HUMAN
     Indication: Diabetes mellitus
     Route: 058
     Dates: start: 20201126
  25. MORPHINE SULFATE [Suspect]
     Active Substance: MORPHINE SULFATE
     Indication: Sciatica
     Route: 065
  26. MORPHINE SULFATE [Suspect]
     Active Substance: MORPHINE SULFATE
     Dosage: 20 MG, QD
     Route: 048
     Dates: start: 20201107, end: 20201126

REACTIONS (6)
  - Coma [Recovered/Resolved]
  - Poisoning deliberate [Recovered/Resolved]
  - Pneumonia aspiration [Recovering/Resolving]
  - Rhabdomyolysis [Recovered/Resolved]
  - Acute kidney injury [Recovered/Resolved]
  - Miosis [Recovered/Resolved]

NARRATIVE: CASE EVENT DATE: 20201126
